FAERS Safety Report 19376563 (Version 2)
Quarter: 2021Q3

REPORT INFORMATION
  Report Type: Spontaneous
  Country: BR (occurrence: BR)
  Receive Date: 20210604
  Receipt Date: 20210712
  Transmission Date: 20211014
  Serious: Yes (Death, Hospitalization, Other)
  Sender: FDA-Public Use
  Company Number: BR-AMGEN-BRASP2021049393

PATIENT
  Age: 7 Year
  Sex: Male

DRUGS (2)
  1. BLINCYTO [Suspect]
     Active Substance: BLINATUMOMAB
     Indication: DISEASE RECURRENCE
     Dosage: UNK
     Route: 065
     Dates: start: 20210313, end: 20210409
  2. BLINCYTO [Suspect]
     Active Substance: BLINATUMOMAB
     Indication: B PRECURSOR TYPE ACUTE LEUKAEMIA

REACTIONS (4)
  - Acute lymphocytic leukaemia recurrent [Fatal]
  - Colitis [Fatal]
  - Septic shock [Fatal]
  - Device related infection [Unknown]

NARRATIVE: CASE EVENT DATE: 202103
